FAERS Safety Report 6367766-5 (Version None)
Quarter: 2009Q3

REPORT INFORMATION
  Report Type: 
  Country: None (occurrence: None)
  Receive Date: 20090921
  Receipt Date: 20090909
  Transmission Date: 20100115
  Serious: Yes (Other)
  Sender: FDA-Public Use
  Company Number: US-ELI_LILLY_AND_COMPANY-US200907004502

PATIENT
  Sex: Male
  Weight: 91.156 kg

DRUGS (8)
  1. ZYPREXA [Suspect]
     Indication: ANXIETY
     Dosage: 30 MG, DAILY (1/D)
     Dates: start: 20050101
  2. ZYPREXA [Suspect]
  3. ZYPREXA [Suspect]
  4. ZYPREXA [Suspect]
  5. ZYPREXA [Suspect]
     Dosage: UNK, UNK
     Dates: end: 20070101
  6. CYMBALTA [Suspect]
     Indication: STRESS
     Dosage: 30 MG, 2/D
  7. CYMBALTA [Suspect]
     Dosage: 30 MG, DAILY (1/D)
  8. ALCOHOL                            /00002101/ [Concomitant]

REACTIONS (17)
  - ANAEMIA [None]
  - FALL [None]
  - GASTROINTESTINAL HAEMORRHAGE [None]
  - HAEMATOCHEZIA [None]
  - HAEMATOSPERMIA [None]
  - HAEMATURIA [None]
  - HAEMORRHAGE [None]
  - HEARING IMPAIRED [None]
  - HEPATIC FAILURE [None]
  - HEPATIC HAEMORRHAGE [None]
  - LIVER INJURY [None]
  - OFF LABEL USE [None]
  - OVERDOSE [None]
  - PLATELET COUNT DECREASED [None]
  - SEXUAL DYSFUNCTION [None]
  - SOMNOLENCE [None]
  - SYNCOPE [None]
